FAERS Safety Report 10004234 (Version 4)
Quarter: 2014Q2

REPORT INFORMATION
  Report Type: Report from Study
  Country: FR (occurrence: FR)
  Receive Date: 20140312
  Receipt Date: 20140520
  Transmission Date: 20141212
  Serious: Yes (Other)
  Sender: FDA-Public Use
  Company Number: FR-JNJFOC-20140304417

PATIENT
  Sex: 0

DRUGS (1)
  1. HUMAN CLOTTABLE PROTEIN/HUMAN THROMBIN [Suspect]
     Indication: HAEMOSTASIS
     Route: 061
     Dates: start: 20100121, end: 20100121

REACTIONS (1)
  - Skin necrosis [Recovered/Resolved]
